FAERS Safety Report 15280607 (Version 3)
Quarter: 2019Q1

REPORT INFORMATION
  Report Type: Spontaneous
  Country: JP (occurrence: JP)
  Receive Date: 20180815
  Receipt Date: 20190109
  Transmission Date: 20190417
  Serious: Yes (Death)
  Sender: FDA-Public Use
  Company Number: JP-BIOCRYST PHARMACEUTICALS, INC.-2018BCR00236

PATIENT
  Age: 70 Year
  Sex: Male

DRUGS (8)
  1. MICARDIS [Concomitant]
     Active Substance: TELMISARTAN
     Indication: HYPERTENSION
     Dosage: UNK
     Route: 048
     Dates: end: 20180126
  2. LACTEC [Concomitant]
     Active Substance: CALCIUM CHLORIDE ANHYDROUS\POTASSIUM CHLORIDE\SODIUM CHLORIDE\SODIUM LACTATE
     Indication: DEHYDRATION
     Dosage: 500 ML, 1X/DAY
     Route: 042
     Dates: start: 20180126, end: 20180127
  3. RAPIACTA [Suspect]
     Active Substance: PERAMIVIR
     Indication: INFLUENZA
     Dosage: 50 MG, 1X/DAY
     Route: 042
     Dates: start: 20180127, end: 20180127
  4. MEYLON [Concomitant]
     Active Substance: SODIUM BICARBONATE
     Indication: METABOLIC ACIDOSIS
     Dosage: 250 ML, 1X/DAY
     Route: 042
     Dates: start: 20180126, end: 20180127
  5. LOXONIN [Concomitant]
     Active Substance: LOXOPROFEN SODIUM
     Indication: PYREXIA
     Dosage: UNK
     Route: 048
     Dates: end: 20180126
  6. KEFRAL [Concomitant]
     Active Substance: CEFACLOR
     Indication: NASOPHARYNGITIS
     Dosage: UNK
     Route: 048
     Dates: end: 20180126
  7. PL (SALICYLAMIDE; ACETAMINOPHEN; ANHYDROUS CAFFEINE; PROMETHAZINE METH [Concomitant]
     Indication: NASOPHARYNGITIS
     Dosage: UNK
     Route: 048
     Dates: end: 20180126
  8. ADALAT [Concomitant]
     Active Substance: NIFEDIPINE
     Indication: HYPERTENSION
     Dosage: UNK
     Route: 048
     Dates: end: 20180126

REACTIONS (1)
  - Shock [Fatal]

NARRATIVE: CASE EVENT DATE: 20180127
